FAERS Safety Report 6399951-0 (Version None)
Quarter: 2009Q4

REPORT INFORMATION
  Report Type: 
  Country: None (occurrence: None)
  Receive Date: 20091008
  Receipt Date: 20091008
  Transmission Date: 20100525
  Serious: Yes (Other)
  Sender: FDA-Public Use
  Company Number: None

PATIENT
  Sex: Male
  Weight: 104.3273 kg

DRUGS (2)
  1. LIPITOR [Suspect]
     Indication: ARTERIAL THERAPEUTIC PROCEDURE
     Dosage: 1 TABLET DAILY
     Dates: start: 20090615
  2. LIPITOR [Suspect]
     Indication: CEREBROVASCULAR ACCIDENT
     Dosage: 1 TABLET DAILY
     Dates: start: 20090615

REACTIONS (9)
  - ABDOMINAL PAIN UPPER [None]
  - CONFUSIONAL STATE [None]
  - DIZZINESS [None]
  - ERUCTATION [None]
  - FATIGUE [None]
  - FLATULENCE [None]
  - MUSCULAR WEAKNESS [None]
  - MYALGIA [None]
  - NAUSEA [None]
